FAERS Safety Report 13794960 (Version 2)
Quarter: 2017Q4

REPORT INFORMATION
  Report Type: Spontaneous
  Country: CA (occurrence: CA)
  Receive Date: 20170726
  Receipt Date: 20171222
  Transmission Date: 20180320
  Serious: Yes (Hospitalization, Other)
  Sender: FDA-Public Use
  Company Number: CA-SUN PHARMACEUTICAL INDUSTRIES LTD-2017US-146163

PATIENT
  Age: 13 Year
  Sex: Male

DRUGS (1)
  1. DOXYCYCLINE. [Suspect]
     Active Substance: DOXYCYCLINE
     Indication: ACNE CONGLOBATA
     Route: 065

REACTIONS (2)
  - Neutrophilic dermatosis [Not Recovered/Not Resolved]
  - Condition aggravated [Not Recovered/Not Resolved]
